FAERS Safety Report 9511423 (Version 1)
Quarter: 2013Q3

REPORT INFORMATION
  Report Type: Other
  Country: US (occurrence: US)
  Receive Date: 20130910
  Receipt Date: 20130910
  Transmission Date: 20140515
  Serious: Yes (Other)
  Sender: FDA-Public Use
  Company Number: US-BRISTOL-MYERS SQUIBB COMPANY-19223858

PATIENT
  Age: 84 Year
  Sex: Female

DRUGS (1)
  1. LEVODOPA + CARBIDOPA [Suspect]
     Dosage: 1 DF: 1/2 TAB,LEVODOPA/CARBIDOPA 25/100 TABS

REACTIONS (1)
  - Migraine [Recovering/Resolving]
